FAERS Safety Report 8552364-5 (Version None)
Quarter: 2012Q3

REPORT INFORMATION
  Report Type: 
  Country: None (occurrence: None)
  Receive Date: 20120731
  Receipt Date: 20120718
  Transmission Date: 20120928
  Serious: Yes (Other)
  Sender: FDA-Public Use
  Company Number: GB-RANBAXY-2012R1-58239

PATIENT
  Age: 31 Year
  Sex: Male
  Weight: 93 kg

DRUGS (1)
  1. NAPROXEN [Suspect]
     Indication: PAIN IN EXTREMITY
     Dosage: 500 MG, BID
     Route: 048
     Dates: start: 20120626, end: 20120627

REACTIONS (3)
  - LYMPH NODE PAIN [None]
  - PENILE SWELLING [None]
  - RASH [None]
